FAERS Safety Report 4713618-3 (Version None)
Quarter: 2005Q3

REPORT INFORMATION
  Report Type: 
  Country: None (occurrence: None)
  Receive Date: 20050712
  Receipt Date: 20050623
  Transmission Date: 20060218
  Serious: Yes (Hospitalization, Other)
  Sender: FDA-Public Use
  Company Number: GBS050517418

PATIENT
  Age: 61 Year
  Sex: Female

DRUGS (4)
  1. FORSTEO (TERIPARATIDE) [Suspect]
     Indication: OSTEOPOROSIS
     Dosage: 20 UG DAY
     Dates: start: 20040401, end: 20050401
  2. IDEOS [Concomitant]
  3. NITRAZEPAM [Concomitant]
  4. BUMETANIDE [Concomitant]

REACTIONS (14)
  - ADRENAL DISORDER [None]
  - BRONCHIAL OBSTRUCTION [None]
  - CALCINOSIS [None]
  - COLLAPSE OF LUNG [None]
  - EMPHYSEMA [None]
  - HAEMORRHAGIC CYST [None]
  - HEPATIC CYST [None]
  - LUNG CONSOLIDATION [None]
  - LYMPHADENOPATHY [None]
  - MEDIASTINAL DISORDER [None]
  - PLEURAL EFFUSION [None]
  - RENAL CYST [None]
  - SMALL CELL LUNG CANCER STAGE UNSPECIFIED [None]
  - UTERINE LEIOMYOMA [None]
